FAERS Safety Report 12241605 (Version 2)
Quarter: 2016Q2

REPORT INFORMATION
  Report Type: Spontaneous
  Country: US (occurrence: US)
  Receive Date: 20160406
  Receipt Date: 20160505
  Transmission Date: 20160815
  Serious: Yes (Other)
  Sender: FDA-Public Use
  Company Number: US-DEPOMED, INC.-US-2016DEP007226

PATIENT

DRUGS (13)
  1. GRALISE [Suspect]
     Active Substance: GABAPENTIN
     Dosage: 1200 MG, QD
     Dates: start: 2015, end: 2015
  2. GRALISE [Suspect]
     Active Substance: GABAPENTIN
     Dosage: UNK, TITRATED GRADUALLY
     Dates: start: 2015, end: 20160325
  3. PERCOCET [Suspect]
     Active Substance: ACETAMINOPHEN\OXYCODONE HYDROCHLORIDE
     Dosage: UNK, TITRATED DOWN TO 5 MG DAILY
     Dates: start: 2015, end: 201602
  4. PROPRANOLOL                        /00030002/ [Concomitant]
     Active Substance: PROPRANOLOL HYDROCHLORIDE
     Indication: AGITATION
  5. ADDERALL [Suspect]
     Active Substance: AMPHETAMINE ASPARTATE\AMPHETAMINE SULFATE\DEXTROAMPHETAMINE SACCHARATE\DEXTROAMPHETAMINE SULFATE
     Indication: ATTENTION DEFICIT/HYPERACTIVITY DISORDER
     Dosage: 30 MG, BID
  6. CYCLOBENZAPRINE [Concomitant]
     Active Substance: CYCLOBENZAPRINE
     Indication: FIBROMYALGIA
     Dosage: 10 MG, PRN
  7. GRALISE [Suspect]
     Active Substance: GABAPENTIN
     Dosage: 1800 MG, QD, WITH EVENING MEAL
     Dates: start: 20160330
  8. PROPRANOLOL                        /00030002/ [Concomitant]
     Active Substance: PROPRANOLOL HYDROCHLORIDE
     Indication: BLOOD PRESSURE INCREASED
  9. PERCOCET [Suspect]
     Active Substance: ACETAMINOPHEN\OXYCODONE HYDROCHLORIDE
     Indication: PAIN
     Dosage: UNK
     Dates: end: 2015
  10. PROPRANOLOL                        /00030002/ [Concomitant]
     Active Substance: PROPRANOLOL HYDROCHLORIDE
     Indication: HEADACHE
     Dosage: 80 MG, QD
     Dates: start: 2015
  11. PROPRANOLOL                        /00030002/ [Concomitant]
     Active Substance: PROPRANOLOL HYDROCHLORIDE
     Indication: ANXIETY
  12. GRALISE [Suspect]
     Active Substance: GABAPENTIN
     Indication: PAIN
     Dosage: TITRATED UP TO 1800 MG, QD
     Dates: start: 2015, end: 2015
  13. NICOTINE. [Concomitant]
     Active Substance: NICOTINE
     Indication: TOBACCO USER
     Dosage: UNK

REACTIONS (29)
  - Depressed mood [Recovered/Resolved]
  - Somnolence [Not Recovered/Not Resolved]
  - Drug dose omission [Recovered/Resolved]
  - Drug ineffective for unapproved indication [Recovered/Resolved]
  - Headache [Unknown]
  - Amnesia [Not Recovered/Not Resolved]
  - Malaise [Unknown]
  - Dysuria [Unknown]
  - Peripheral swelling [Unknown]
  - Weight increased [Unknown]
  - Incorrect dose administered [Recovered/Resolved]
  - Feeling abnormal [Recovered/Resolved]
  - Urine odour abnormal [Not Recovered/Not Resolved]
  - Formication [Unknown]
  - Inappropriate schedule of drug administration [Recovered/Resolved]
  - Blindness [Recovered/Resolved]
  - Drug withdrawal syndrome [Unknown]
  - Fatigue [Unknown]
  - Sciatica [Unknown]
  - Euphoric mood [Recovering/Resolving]
  - Pain [Recovered/Resolved]
  - Abdominal distension [Unknown]
  - Cough [Unknown]
  - Nausea [Unknown]
  - Mental fatigue [Unknown]
  - Incontinence [Unknown]
  - Off label use [Recovered/Resolved]
  - Hypersomnia [Unknown]
  - Drug prescribing error [Recovered/Resolved]

NARRATIVE: CASE EVENT DATE: 2015
